FAERS Safety Report 10128473 (Version 1)
Quarter: 2014Q2

REPORT INFORMATION
  Report Type: Spontaneous
  Country: US (occurrence: None)
  Receive Date: 20140424
  Receipt Date: 20140424
  Transmission Date: 20141212
  Serious: Yes (Hospitalization, Other)
  Sender: FDA-Public Use
  Company Number: SYM-2014-19966

PATIENT
  Age: 25 Year
  Sex: Female

DRUGS (1)
  1. XENAZINE (TETRABENAZINE) (12.5 MILLIGRAM, TABLET) (TETRABENAZINE) [Suspect]
     Indication: CEREBRAL PALSY
     Dosage: 3 IN 1 D
     Route: 048
     Dates: start: 20131112

REACTIONS (2)
  - Pulmonary embolism [None]
  - Influenza [None]
